FAERS Safety Report 25752805 (Version 2)
Quarter: 2025Q3

REPORT INFORMATION
  Report Type: Report from Study
  Country: US (occurrence: US)
  Receive Date: 20250902
  Receipt Date: 20250917
  Transmission Date: 20251020
  Serious: No
  Sender: BOEHRINGER INGELHEIM
  Company Number: US-BoehringerIngelheim-2025-BI-092742

PATIENT
  Age: 44 Year
  Sex: Male

DRUGS (1)
  1. OFEV [Suspect]
     Active Substance: NINTEDANIB
     Indication: Product used for unknown indication
     Dates: start: 20250805

REACTIONS (3)
  - Cough [Recovering/Resolving]
  - Increased viscosity of bronchial secretion [Unknown]
  - Sputum discoloured [Unknown]
